FAERS Safety Report 8835994 (Version 3)
Quarter: 2013Q2

REPORT INFORMATION
  Report Type: Spontaneous
  Country: US (occurrence: US)
  Receive Date: 20121011
  Receipt Date: 20130405
  Transmission Date: 20140414
  Serious: Yes (Disabling, Other)
  Sender: FDA-Public Use
  Company Number: US-009507513-1209USA009080

PATIENT
  Sex: Male

DRUGS (3)
  1. PEG-INTRON [Suspect]
     Indication: HEPATITIS C
     Dosage: UNK
     Route: 058
     Dates: start: 20120414, end: 20120505
  2. PEG-INTRON [Suspect]
     Dosage: UNK
     Route: 058
     Dates: start: 20120505, end: 20130329
  3. REBETOL [Suspect]
     Indication: HEPATITIS C
     Dosage: UNK
     Route: 048
     Dates: start: 20120414

REACTIONS (17)
  - Dizziness [Unknown]
  - Mouth ulceration [Unknown]
  - White blood cell count decreased [Unknown]
  - Leukopenia [Unknown]
  - Psoriasis [Unknown]
  - Rash [Unknown]
  - Injection site reaction [Unknown]
  - Malaise [Unknown]
  - Myalgia [Unknown]
  - Nausea [Unknown]
  - Dizziness [Unknown]
  - Rash [Unknown]
  - Eczema [Unknown]
  - Nausea [Unknown]
  - Dizziness [Unknown]
  - Blood disorder [Unknown]
  - Lymphatic disorder [Unknown]
